FAERS Safety Report 22116220 (Version 1)
Quarter: 2023Q1

REPORT INFORMATION
  Report Type: Spontaneous
  Country: US (occurrence: None)
  Receive Date: 20230320
  Receipt Date: 20230320
  Transmission Date: 20230418
  Serious: Yes (Hospitalization)
  Sender: FDA-Public Use
  Company Number: None

PATIENT
  Age: 64 Year
  Sex: Female
  Weight: 65.77 kg

DRUGS (1)
  1. PAXLOVID [Suspect]
     Active Substance: NIRMATRELVIR\RITONAVIR
     Indication: COVID-19
     Dosage: FREQUENCY : DAILY;?
     Route: 048
     Dates: start: 20230127, end: 20230201

REACTIONS (7)
  - Atrial fibrillation [None]
  - Abdominal pain upper [None]
  - Dyspepsia [None]
  - Erythema [None]
  - Insomnia [None]
  - Restlessness [None]
  - Skin warm [None]

NARRATIVE: CASE EVENT DATE: 20230129
